FAERS Safety Report 8791758 (Version 3)
Quarter: 2012Q4

REPORT INFORMATION
  Report Type: 
  Country: US (occurrence: US)
  Receive Date: 20120918
  Receipt Date: 20121116
  Transmission Date: 20130627
  Serious: Yes (Hospitalization, Other)
  Sender: FDA-Public Use
  Company Number: US-BAXTER-2012BAX017007

PATIENT
  Age: 68 Year
  Sex: Female

DRUGS (2)
  1. DIANEAL LOW CALCIUM [Suspect]
     Indication: PERITONEAL DIALYSIS
     Route: 033
  2. EXTRANEAL [Suspect]
     Indication: PERITONEAL DIALYSIS
     Route: 033

REACTIONS (7)
  - Coronary artery disease [Recovering/Resolving]
  - Cardiac disorder [Recovering/Resolving]
  - Convulsion [Recovering/Resolving]
  - Wound infection [Recovering/Resolving]
  - Excoriation [Recovering/Resolving]
  - Skin ulcer [Recovering/Resolving]
  - Pyrexia [Recovering/Resolving]
